FAERS Safety Report 21252625 (Version 1)
Quarter: 2022Q3

REPORT INFORMATION
  Report Type: Spontaneous
  Country: US (occurrence: US)
  Receive Date: 20220825
  Receipt Date: 20220825
  Transmission Date: 20221027
  Serious: No
  Sender: FDA-Public Use
  Company Number: ENDG22-04685

PATIENT
  Sex: Female

DRUGS (1)
  1. VARENICLINE [Suspect]
     Active Substance: VARENICLINE
     Indication: Smoking cessation therapy
     Dosage: 0.5 MG, UNKNOWN (TWICE)
     Route: 048

REACTIONS (4)
  - Peripheral swelling [Unknown]
  - Muscular weakness [Unknown]
  - Grip strength decreased [Unknown]
  - Pain in extremity [Unknown]
